FAERS Safety Report 26116720 (Version 1)
Quarter: 2025Q4

REPORT INFORMATION
  Report Type: Spontaneous
  Country: GB (occurrence: GB)
  Receive Date: 20251203
  Receipt Date: 20251203
  Transmission Date: 20260117
  Serious: Yes (Other)
  Sender: BAYER HEALTHCARE PHARMACEUTICALS INC.
  Company Number: None

PATIENT
  Age: 79 Year
  Sex: Male
  Weight: 82 kg

DRUGS (1)
  1. CIPROFLOXACIN [Suspect]
     Active Substance: CIPROFLOXACIN
     Indication: Tooth infection
     Route: 048
     Dates: start: 20190701, end: 20190711

REACTIONS (4)
  - Medication error [Unknown]
  - Collagen disorder [Not Recovered/Not Resolved]
  - Skin disorder [None]
  - Arthralgia [None]

NARRATIVE: CASE EVENT DATE: 20190701
